FAERS Safety Report 20744747 (Version 2)
Quarter: 2022Q2

REPORT INFORMATION
  Report Type: Other
  Country: US (occurrence: US)
  Receive Date: 20220425
  Receipt Date: 20220602
  Transmission Date: 20220721
  Serious: Yes (Hospitalization, Other)
  Sender: FDA-Public Use
  Company Number: US-Covis Pharma GmbH-2022COV01178

PATIENT
  Age: 36 Year
  Sex: Female
  Weight: 66.738 kg

DRUGS (3)
  1. MAKENA [Suspect]
     Active Substance: HYDROXYPROGESTERONE CAPROATE
     Indication: Premature delivery
     Route: 058
     Dates: start: 20211130, end: 20220322
  2. METFORMIN [Concomitant]
     Active Substance: METFORMIN HYDROCHLORIDE
     Indication: Gestational diabetes
     Dates: start: 20211228, end: 20220331
  3. VITAMINS [Concomitant]
     Active Substance: VITAMINS
     Indication: Pregnancy

REACTIONS (2)
  - Preterm premature rupture of membranes [Recovered/Resolved]
  - Premature delivery [Recovered/Resolved]

NARRATIVE: CASE EVENT DATE: 20220329
